FAERS Safety Report 13162294 (Version 2)
Quarter: 2017Q1

REPORT INFORMATION
  Report Type: Spontaneous
  Country: US (occurrence: US)
  Receive Date: 20170130
  Receipt Date: 20170207
  Transmission Date: 20170428
  Serious: Yes (Hospitalization)
  Sender: FDA-Public Use
  Company Number: US-CONCORDIA PHARMACEUTICALS INC.-GSH201701-000668

PATIENT
  Age: 59 Year
  Sex: Female

DRUGS (3)
  1. PLAQUENIL [Suspect]
     Active Substance: HYDROXYCHLOROQUINE SULFATE
     Indication: PRODUCT USED FOR UNKNOWN INDICATION
     Route: 065
  2. CELLCEPT [Suspect]
     Active Substance: MYCOPHENOLATE MOFETIL\MYCOPHENOLATE MOFETIL HYDROCHLORIDE
     Indication: PRODUCT USED FOR UNKNOWN INDICATION
     Route: 065
  3. COUMADIN [Concomitant]
     Active Substance: WARFARIN SODIUM

REACTIONS (15)
  - Lumbar puncture abnormal [Recovering/Resolving]
  - Depressed level of consciousness [Recovering/Resolving]
  - Confusional state [Recovering/Resolving]
  - CSF glucose increased [Recovering/Resolving]
  - Streptococcal infection [Recovering/Resolving]
  - Sepsis [Recovering/Resolving]
  - CSF protein increased [Recovering/Resolving]
  - Encephalopathy [Recovering/Resolving]
  - CSF red blood cell count positive [Recovering/Resolving]
  - Streptococcus test positive [Recovering/Resolving]
  - Pyrexia [Recovering/Resolving]
  - Abscess [Recovering/Resolving]
  - Rash erythematous [Recovering/Resolving]
  - C-reactive protein increased [Recovering/Resolving]
  - Meningitis pneumococcal [Recovering/Resolving]
